FAERS Safety Report 15578376 (Version 1)
Quarter: 2018Q4

REPORT INFORMATION
  Report Type: Spontaneous
  Country: DE (occurrence: DE)
  Receive Date: 20181102
  Receipt Date: 20181102
  Transmission Date: 20190205
  Serious: Yes (Congenital Anomaly, Other)
  Sender: FDA-Public Use
  Company Number: DE-AUROBINDO-AUR-APL-2018-053483

PATIENT
  Age: 1 Day
  Sex: Male
  Weight: 3.2 kg

DRUGS (3)
  1. LAMOTRIGINE. [Suspect]
     Active Substance: LAMOTRIGINE
     Indication: EPILEPSY
     Dosage: 350 MILLIGRAM, ONCE A DAY/DOSAGE 250-350 MG/D, AS NEEDED FOR A STEADY SERUM LEVEL, 1ST TRIMESTER
     Route: 064
     Dates: start: 20170427, end: 20180212
  2. LEVETIRACETAM. [Suspect]
     Active Substance: LEVETIRACETAM
     Indication: EPILEPSY
     Dosage: 500 MILLIGRAM, ONCE A DAY, 1ST TRIMESTER
     Route: 064
     Dates: start: 20170427, end: 20180212
  3. FOLIC ACID. [Concomitant]
     Active Substance: FOLIC ACID
     Indication: PROPHYLAXIS OF NEURAL TUBE DEFECT
     Dosage: 5 MILLIGRAM, ONCE A DAY, 1ST TRIMESTER
     Route: 064
     Dates: start: 20170427, end: 20180212

REACTIONS (2)
  - Foetal exposure during pregnancy [Unknown]
  - Pulmonary valve stenosis congenital [Recovered/Resolved with Sequelae]

NARRATIVE: CASE EVENT DATE: 20180212
